FAERS Safety Report 17920248 (Version 1)
Quarter: 2020Q2

REPORT INFORMATION
  Report Type: Spontaneous
  Country: US (occurrence: US)
  Receive Date: 20200620
  Receipt Date: 20200620
  Transmission Date: 20200714
  Serious: No
  Sender: FDA-Public Use
  Company Number: US-TEVA-2020-US-1788802

PATIENT
  Sex: Male

DRUGS (1)
  1. COPAXONE [Suspect]
     Active Substance: GLATIRAMER ACETATE
     Route: 065

REACTIONS (6)
  - Lip swelling [Unknown]
  - Gait inability [Unknown]
  - Flushing [Unknown]
  - Hypersensitivity [Unknown]
  - Erythema [Unknown]
  - Pain [Unknown]
